FAERS Safety Report 23494862 (Version 1)
Quarter: 2024Q1

REPORT INFORMATION
  Report Type: Report from Study
  Country: US (occurrence: None)
  Receive Date: 20240207
  Receipt Date: 20240207
  Transmission Date: 20240410
  Serious: Yes (Death, Other)
  Sender: FDA-Public Use
  Company Number: 2024A028238

PATIENT
  Age: 5010 Week
  Sex: Female

DRUGS (5)
  1. TAGRISSO [Suspect]
     Active Substance: OSIMERTINIB
     Indication: Lung carcinoma cell type unspecified stage 0
     Route: 048
  2. CALCIUM 500 [Concomitant]
  3. CENTRAVITES [Concomitant]
  4. DILTIAZEM [Concomitant]
     Active Substance: DILTIAZEM
     Dosage: 180 MG
  5. LOSARTAN [Concomitant]
     Active Substance: LOSARTAN
     Dosage: 100 MG

REACTIONS (1)
  - Death [Fatal]

NARRATIVE: CASE EVENT DATE: 20240122
